FAERS Safety Report 23676864 (Version 2)
Quarter: 2024Q1

REPORT INFORMATION
  Report Type: Report from Study
  Country: GB (occurrence: None)
  Receive Date: 20240327
  Receipt Date: 20240329
  Transmission Date: 20240410
  Serious: Yes (Other)
  Sender: FDA-Public Use
  Company Number: 2024A062071

PATIENT
  Age: 61 Year
  Sex: Female
  Weight: 49.1 kg

DRUGS (1)
  1. SELUMETINIB [Suspect]
     Active Substance: SELUMETINIB
     Indication: Neurofibroma
     Route: 048

REACTIONS (7)
  - Disease progression [Unknown]
  - Toxicity to various agents [Unknown]
  - Musculoskeletal pain [Unknown]
  - Fatigue [Unknown]
  - Nausea [Unknown]
  - Dry skin [Unknown]
  - Drug ineffective [Unknown]

NARRATIVE: CASE EVENT DATE: 20240111
